FAERS Safety Report 8265186 (Version 2)
Quarter: 2012Q4

REPORT INFORMATION
  Report Type: 
  Country: MX (occurrence: MX)
  Receive Date: 20111128
  Receipt Date: 20121018
  Transmission Date: 20130627
  Serious: Yes (Other)
  Sender: FDA-Public Use
  Company Number: PHHY2011MX102418

PATIENT
  Age: 53 None
  Sex: Female

DRUGS (5)
  1. EXFORGE [Suspect]
     Indication: HYPERTENSION
     Dosage: 1 DF (160/5 mg), Daily
     Dates: start: 200911
  2. EXFORGE [Suspect]
     Dosage: 2 DF (160/5 mg), Daily
     Dates: start: 201210
  3. NOVOTIRAL [Concomitant]
     Dosage: 0.75 DF(unk), Daily
     Dates: start: 200911
  4. DABEX [Concomitant]
     Indication: METABOLIC SYNDROME
     Dosage: 2 DF daily
     Dates: start: 2010
  5. TENORETIC [Concomitant]
     Indication: BLOOD PRESSURE
     Dosage: 1 DF daily
     Dates: start: 2010

REACTIONS (7)
  - Lumbar hernia [Not Recovered/Not Resolved]
  - Feeling abnormal [Not Recovered/Not Resolved]
  - Dizziness [Not Recovered/Not Resolved]
  - Headache [Not Recovered/Not Resolved]
  - Nausea [Not Recovered/Not Resolved]
  - Chest discomfort [Not Recovered/Not Resolved]
  - Blood pressure abnormal [Not Recovered/Not Resolved]
